FAERS Safety Report 4546389-4 (Version None)
Quarter: 2005Q1

REPORT INFORMATION
  Report Type: 
  Country: None (occurrence: None)
  Receive Date: 20050103
  Receipt Date: 20041119
  Transmission Date: 20050727
  Serious: Yes (Other)
  Sender: FDA-Public Use
  Company Number: 2004097562

PATIENT
  Age: 62 Year
  Sex: Female

DRUGS (4)
  1. CELEBREX [Suspect]
     Indication: ILL-DEFINED DISORDER
     Dosage: 200 MG (200 MG, DAILY), ORAL
     Route: 048
  2. LORAZEPAM [Concomitant]
  3. PROGESTERONE [Concomitant]
  4. LEVOTHYROXINE SODIUM [Concomitant]

REACTIONS (7)
  - CARDIAC FIBRILLATION [None]
  - CEREBROVASCULAR ACCIDENT [None]
  - FATIGUE [None]
  - HEADACHE [None]
  - MUSCULAR WEAKNESS [None]
  - SPEECH DISORDER [None]
  - TACHYCARDIA [None]
